FAERS Safety Report 5308588-3 (Version None)
Quarter: 2007Q2

REPORT INFORMATION
  Report Type: 
  Country: None (occurrence: None)
  Receive Date: 20070426
  Receipt Date: 20070420
  Transmission Date: 20071010
  Serious: Yes (Hospitalization)
  Sender: FDA-Public Use
  Company Number: FRWYE507920APR07

PATIENT
  Age: 13 Year
  Sex: Female
  Weight: 45 kg

DRUGS (2)
  1. ADVIL [Suspect]
     Indication: PYREXIA
     Dosage: UNKNOWN
     Route: 048
     Dates: start: 20070202, end: 20070212
  2. ADVIL [Suspect]
     Dosage: UNKNOWN
     Route: 048
     Dates: start: 20070217, end: 20070219

REACTIONS (5)
  - ABDOMINAL PAIN [None]
  - DIARRHOEA [None]
  - LUNG DISORDER [None]
  - RENAL FAILURE ACUTE [None]
  - VOMITING [None]
